FAERS Safety Report 4804321-X (Version None)
Quarter: 2005Q4

REPORT INFORMATION
  Report Type: 
  Country: None (occurrence: None)
  Receive Date: 20051017
  Receipt Date: 20050930
  Transmission Date: 20060501
  Serious: Yes (Other)
  Sender: FDA-Public Use
  Company Number: 12601

PATIENT
  Age: 10 Month

DRUGS (1)
  1. DILTIAZEM [Suspect]

REACTIONS (1)
  - OVERDOSE [None]
